FAERS Safety Report 11320571 (Version 1)
Quarter: 2015Q3

REPORT INFORMATION
  Report Type: Report from Study
  Country: BR (occurrence: BR)
  Receive Date: 20150729
  Receipt Date: 20150729
  Transmission Date: 20151125
  Serious: Yes (Other)
  Sender: FDA-Public Use
  Company Number: PHHY2015BR089966

PATIENT
  Sex: Male

DRUGS (1)
  1. TASIGNA [Suspect]
     Active Substance: NILOTINIB
     Indication: CHRONIC MYELOID LEUKAEMIA
     Dosage: 2 DF, BID (2 TABLETS IN THE MORNING AND 2 TABLETS IN THE EVENING)
     Route: 065

REACTIONS (3)
  - Arrhythmia [Unknown]
  - Syncope [Unknown]
  - Malaise [Unknown]
